FAERS Safety Report 6953951-8 (Version None)
Quarter: 2010Q3

REPORT INFORMATION
  Report Type: 
  Country: None (occurrence: None)
  Receive Date: 20100829
  Receipt Date: 20100701
  Transmission Date: 20110219
  Serious: No
  Sender: FDA-Public Use
  Company Number: US-ABBOTT-10P-163-0654717-00

PATIENT
  Sex: Male

DRUGS (3)
  1. NIASPAN [Suspect]
     Indication: HYPERLIPIDAEMIA
     Dosage: 2- 1000 MG TABLETS DAILY AT BEDTIME
     Dates: start: 20090501
  2. SIMCOR [Suspect]
     Indication: HYPERLIPIDAEMIA
     Dosage: 2- 1000MG/20MG TABLETS DAILY AT BEDTIME
     Dates: start: 20100501
  3. LEVOTHYROXINE [Concomitant]
     Indication: PRODUCT USED FOR UNKNOWN INDICATION

REACTIONS (2)
  - FLUSHING [None]
  - PRURITUS [None]
